FAERS Safety Report 16354304 (Version 9)
Quarter: 2020Q2

REPORT INFORMATION
  Report Type: Report from Study
  Country: IT (occurrence: IT)
  Receive Date: 20190524
  Receipt Date: 20200514
  Transmission Date: 20200713
  Serious: Yes (Hospitalization)
  Sender: FDA-Public Use
  Company Number: IT-JNJFOC-20190522927

PATIENT
  Age: 75 Year
  Sex: Male
  Weight: 75 kg

DRUGS (8)
  1. EMINOCS [Concomitant]
     Indication: PSORIATIC ARTHROPATHY
     Route: 048
     Dates: start: 2018
  2. ENOXAPARINA [Concomitant]
     Active Substance: ENOXAPARIN
     Dosage: 4000 U FL FOR 3 WEEKS
     Dates: start: 201905, end: 201906
  3. PARACETAMOL [Concomitant]
     Active Substance: ACETAMINOPHEN
  4. REUMAFLEX [Concomitant]
     Route: 058
     Dates: start: 201903, end: 201904
  5. STELARA [Suspect]
     Active Substance: USTEKINUMAB
     Indication: PSORIATIC ARTHROPATHY
     Route: 058
     Dates: start: 201903, end: 201904
  6. FOLINIC ACID [Concomitant]
     Active Substance: LEUCOVORIN
     Indication: PSORIATIC ARTHROPATHY
     Route: 048
     Dates: start: 2018
  7. REUMAFLEX [Concomitant]
     Indication: PSORIATIC ARTHROPATHY
     Route: 058
     Dates: start: 201811, end: 201903
  8. SANDOSTATIN [Concomitant]
     Active Substance: OCTREOTIDE ACETATE
     Dates: start: 20190806

REACTIONS (3)
  - Off label use [Unknown]
  - Incorrect dose administered [Unknown]
  - Neuroendocrine tumour [Unknown]

NARRATIVE: CASE EVENT DATE: 20190419
